FAERS Safety Report 6604013-0 (Version None)
Quarter: 2010Q1

REPORT INFORMATION
  Report Type: 
  Country: None (occurrence: None)
  Receive Date: 20100226
  Receipt Date: 20090406
  Transmission Date: 20100710
  Serious: No
  Sender: FDA-Public Use
  Company Number: A0778517A

PATIENT
  Age: 70 Year
  Sex: Female

DRUGS (5)
  1. LAMICTAL CD [Suspect]
     Indication: BACK PAIN
     Dosage: .5TAB UNKNOWN
     Route: 048
     Dates: start: 20060101
  2. ATENOLOL [Concomitant]
  3. THYROID MEDICATION [Concomitant]
  4. KLONOPIN [Concomitant]
  5. UNKNOWN MEDICATION [Concomitant]

REACTIONS (3)
  - ABDOMINAL PAIN UPPER [None]
  - IRRITABILITY [None]
  - NERVOUSNESS [None]
